FAERS Safety Report 20142279 (Version 1)
Quarter: 2021Q4

REPORT INFORMATION
  Report Type: Spontaneous
  Country: None (occurrence: US)
  Receive Date: 20211202
  Receipt Date: 20211202
  Transmission Date: 20220303
  Serious: Yes (Other)
  Sender: FDA-Public Use
  Company Number: US-Westminster Pharmaceuticals, LLC-2122618

PATIENT
  Age: 34 Year
  Sex: Female

DRUGS (1)
  1. PHENAZOPYRIDINE HYDROCHLORIDE [Suspect]
     Active Substance: PHENAZOPYRIDINE HYDROCHLORIDE
     Indication: Product dispensing error
     Route: 067
     Dates: start: 20211112, end: 20211115

REACTIONS (2)
  - Abortion spontaneous [Unknown]
  - Product dispensing error [None]

NARRATIVE: CASE EVENT DATE: 20211124
